FAERS Safety Report 6403202-8 (Version None)
Quarter: 2009Q4

REPORT INFORMATION
  Report Type: 
  Country: None (occurrence: None)
  Receive Date: 20091016
  Receipt Date: 20091007
  Transmission Date: 20100525
  Serious: Yes (Other)
  Sender: FDA-Public Use
  Company Number: BR-PFIZER INC-2009217674

PATIENT
  Age: 27 Year

DRUGS (3)
  1. DEPO-PROVERA [Suspect]
     Indication: CONTRACEPTION
     Dosage: 150 MG, EVERY 3 MONTHS
     Route: 030
     Dates: start: 20090506, end: 20090701
  2. BEROTEC [Concomitant]
     Indication: ASTHMA
     Dosage: UNK
  3. ATROVENT [Concomitant]
     Indication: ASTHMA
     Dosage: UNK

REACTIONS (3)
  - MENORRHAGIA [None]
  - METRORRHAGIA [None]
  - OVARIAN CYST [None]
